FAERS Safety Report 13966183 (Version 1)
Quarter: 2017Q3

REPORT INFORMATION
  Report Type: Spontaneous
  Country: DE (occurrence: DE)
  Receive Date: 20170913
  Receipt Date: 20170913
  Transmission Date: 20171128
  Serious: Yes (Life-Threatening, Hospitalization, Other)
  Sender: FDA-Public Use
  Company Number: DE-AMGEN-DEUSP2017138091

PATIENT
  Sex: Male

DRUGS (19)
  1. PEGFILGRASTIM [Suspect]
     Active Substance: PEGFILGRASTIM
     Dosage: 480 MUG, UNK
     Route: 065
     Dates: start: 20131205, end: 20131205
  2. PREDNISOLONE. [Suspect]
     Active Substance: PREDNISOLONE
     Indication: B-CELL LYMPHOMA
     Dosage: 100 MG, UNK (DAY 1-5)
     Route: 048
     Dates: start: 20130717, end: 20131022
  3. PREDNISOLONE. [Suspect]
     Active Substance: PREDNISOLONE
     Dosage: 100 MG, UNK
     Route: 042
     Dates: start: 20131206, end: 20131210
  4. RITUXIMAB. [Suspect]
     Active Substance: RITUXIMAB
     Indication: B-CELL LYMPHOMA
     Dosage: 686 MG, QD
     Route: 042
     Dates: start: 20130722, end: 20131030
  5. CYCLOPHOSPHAMIDE. [Suspect]
     Active Substance: CYCLOPHOSPHAMIDE
     Indication: B-CELL LYMPHOMA
     Dosage: 750 MG/M2, QD
     Route: 042
     Dates: start: 20130918, end: 20131018
  6. PEGFILGRASTIM [Suspect]
     Active Substance: PEGFILGRASTIM
     Indication: B-CELL LYMPHOMA
     Dosage: UNK UNK, QD (DAILY DOSE: 30IE (4 IN 33 D)
     Route: 058
     Dates: start: 20130922, end: 20131024
  7. PEGFILGRASTIM [Suspect]
     Active Substance: PEGFILGRASTIM
     Dosage: 480 MUG, QD
     Route: 058
     Dates: start: 20140108, end: 20140108
  8. PEGFILGRASTIM [Suspect]
     Active Substance: PEGFILGRASTIM
     Dosage: 480 MUG, QD
     Route: 058
     Dates: start: 20131210, end: 20131219
  9. ENOXAPARIN SODIUM. [Concomitant]
     Active Substance: ENOXAPARIN SODIUM
     Indication: THROMBOSIS PROPHYLAXIS
     Dosage: 4 ML, QD
     Route: 058
     Dates: start: 20130831
  10. DOXORUBICIN [Suspect]
     Active Substance: DOXORUBICIN
     Indication: B-CELL LYMPHOMA
     Dosage: 50 MG/M2, QD
     Route: 042
     Dates: start: 20130918, end: 20131018
  11. DOXORUBICIN [Suspect]
     Active Substance: DOXORUBICIN
     Dosage: 91 MG, QD
     Route: 042
     Dates: start: 20131206, end: 20131206
  12. TAMSULOSIN [Concomitant]
     Active Substance: TAMSULOSIN
     Indication: BENIGN PROSTATIC HYPERPLASIA
     Dosage: 4 MG, QD
     Route: 048
  13. RITUXIMAB. [Suspect]
     Active Substance: RITUXIMAB
     Dosage: 690 MG, QD
     Route: 042
     Dates: start: 20131118, end: 20131118
  14. CYCLOPHOSPHAMIDE. [Suspect]
     Active Substance: CYCLOPHOSPHAMIDE
     Dosage: 1365 MG, QD
     Route: 042
     Dates: start: 20131206, end: 20131206
  15. VINCRISTIN [Suspect]
     Active Substance: VINCRISTINE
     Dosage: 3.68 MG, QD
     Route: 042
     Dates: start: 20131205, end: 20131205
  16. ACICLOVIR [Concomitant]
     Active Substance: ACYCLOVIR
     Indication: ANTIFUNGAL PROPHYLAXIS
     Dosage: 400 MG, BID
     Route: 048
     Dates: start: 20130913
  17. RITUXIMAB. [Suspect]
     Active Substance: RITUXIMAB
     Dosage: 690 MG, UNK
     Route: 042
     Dates: start: 20140115
  18. VINCRISTIN [Suspect]
     Active Substance: VINCRISTINE
     Indication: B-CELL LYMPHOMA
     Dosage: 3.70 MG, QD
     Route: 042
     Dates: start: 20131018, end: 20131101
  19. SULFAMETHOXAZOLE W/TRIMETHOPRIM [Concomitant]
     Active Substance: SULFAMETHOXAZOLE\TRIMETHOPRIM
     Indication: ANTIBIOTIC PROPHYLAXIS
     Dosage: 960 MG, BID
     Route: 048
     Dates: start: 20130914

REACTIONS (3)
  - Leukopenia [Recovered/Resolved]
  - Haematochezia [Unknown]
  - Rectal haemorrhage [Unknown]

NARRATIVE: CASE EVENT DATE: 20131101
